FAERS Safety Report 10632410 (Version 1)
Quarter: 2014Q4

REPORT INFORMATION
  Report Type: Spontaneous
  Country: US (occurrence: US)
  Receive Date: 20141205
  Receipt Date: 20141205
  Transmission Date: 20150529
  Serious: No
  Sender: FDA-Public Use
  Company Number: US-BRISTOL-MYERS SQUIBB COMPANY-21303243

PATIENT
  Age: 61 Year
  Sex: Female
  Weight: 107.93 kg

DRUGS (12)
  1. CLONAZEPAM. [Concomitant]
     Active Substance: CLONAZEPAM
  2. PREDNISONE. [Concomitant]
     Active Substance: PREDNISONE
     Dosage: TABLET
  3. ORENCIA [Suspect]
     Active Substance: ABATACEPT
     Dosage: 1DF: 125MG/ML
     Route: 048
  4. VITAMIN D [Concomitant]
     Active Substance: CHOLECALCIFEROL
  5. ZITHROMAX [Concomitant]
     Active Substance: AZITHROMYCIN DIHYDRATE
  6. LISINOPRIL. [Concomitant]
     Active Substance: LISINOPRIL
  7. TOPROL XL [Concomitant]
     Active Substance: METOPROLOL SUCCINATE
  8. CLIMARA [Concomitant]
     Active Substance: ESTRADIOL
  9. LEUCOVORIN [Concomitant]
     Active Substance: LEUCOVORIN
  10. NEURONTIN [Concomitant]
     Active Substance: GABAPENTIN
  11. VICODIN [Concomitant]
     Active Substance: ACETAMINOPHEN\HYDROCODONE BITARTRATE
  12. NEXIUM [Concomitant]
     Active Substance: ESOMEPRAZOLE MAGNESIUM

REACTIONS (2)
  - Alopecia [Unknown]
  - Diarrhoea [Unknown]

NARRATIVE: CASE EVENT DATE: 20120101
